FAERS Safety Report 18953875 (Version 1)
Quarter: 2021Q1

REPORT INFORMATION
  Report Type: Spontaneous
  Country: US (occurrence: US)
  Receive Date: 20210301
  Receipt Date: 20210301
  Transmission Date: 20210420
  Serious: Yes (Other)
  Sender: FDA-Public Use
  Company Number: US-ORGANON-O2102USA007609

PATIENT
  Sex: Female

DRUGS (4)
  1. OVIDRELLE [Concomitant]
     Dosage: UNK
  2. MENOPUR [Concomitant]
     Active Substance: FOLLITROPIN\LUTEINIZING HORMONE
     Dosage: UNK
  3. FOLLISTIM AQ [Suspect]
     Active Substance: FOLLITROPIN
     Indication: INFERTILITY FEMALE
     Dosage: 50 UNITS, NIGHTLY
     Route: 058
     Dates: start: 20200129
  4. CLOMIPHENE [CLOMIFENE] [Concomitant]
     Dosage: UNK

REACTIONS (1)
  - Abortion spontaneous [Unknown]
